FAERS Safety Report 17049113 (Version 3)
Quarter: 2020Q1

REPORT INFORMATION
  Report Type: Spontaneous
  Country: JP (occurrence: JP)
  Receive Date: 20191119
  Receipt Date: 20200129
  Transmission Date: 20200409
  Serious: Yes (Hospitalization, Disabling, Other)
  Sender: FDA-Public Use
  Company Number: JP-009507513-1911JPN001623J

PATIENT
  Age: 74 Year
  Sex: Female
  Weight: 44 kg

DRUGS (7)
  1. HALIZON [Suspect]
     Active Substance: AMPHOTERICIN B
     Indication: ORAL CANDIDIASIS
     Dosage: 150 MILLIGRAM, QD
     Route: 048
     Dates: start: 20190824
  2. PREDNISOLONE. [Suspect]
     Active Substance: PREDNISOLONE
     Indication: OCULOMUCOCUTANEOUS SYNDROME
     Dosage: 12.5 MILLIGRAM, QD
     Route: 048
     Dates: start: 20190605
  3. FAMOTIDINE. [Suspect]
     Active Substance: FAMOTIDINE
     Indication: GASTRIC ULCER
     Dosage: 20 MILLIGRAM, QD
     Route: 048
     Dates: start: 20190816
  4. KEYTRUDA [Suspect]
     Active Substance: PEMBROLIZUMAB
     Indication: NON-SMALL CELL LUNG CANCER
     Dosage: 200 MILLIGRAM, Q3W
     Route: 041
     Dates: start: 20181212, end: 20190605
  5. PREDNISOLONE. [Suspect]
     Active Substance: PREDNISOLONE
     Indication: POLYMYALGIA RHEUMATICA
  6. SAMTIREL [Suspect]
     Active Substance: ATOVAQUONE
     Indication: PROPHYLAXIS
     Dosage: 1500 MILLIGRAM, QD
     Route: 048
     Dates: start: 20190819
  7. CAMOSTAT [Suspect]
     Active Substance: CAMOSTAT
     Indication: PANCREATITIS
     Dosage: 600 MILLIGRAM, QD
     Route: 048
     Dates: start: 20190815

REACTIONS (8)
  - Pancreatitis [Unknown]
  - Hepatic function abnormal [Recovered/Resolved]
  - Panic disorder [Unknown]
  - Off label use [Unknown]
  - Polymyalgia rheumatica [Recovered/Resolved]
  - Hypothyroidism [Recovered/Resolved]
  - Cholangitis sclerosing [Unknown]
  - Oculomucocutaneous syndrome [Recovered/Resolved]

NARRATIVE: CASE EVENT DATE: 2019
